FAERS Safety Report 10623636 (Version 12)
Quarter: 2019Q3

REPORT INFORMATION
  Report Type: Spontaneous
  Country: US (occurrence: US)
  Receive Date: 20141203
  Receipt Date: 20190820
  Transmission Date: 20191004
  Serious: Yes (Hospitalization)
  Sender: FDA-Public Use
  Company Number: US-PFIZER INC-2014330856

PATIENT
  Age: 64 Year
  Sex: Female
  Weight: 108.4 kg

DRUGS (35)
  1. CLONIDINE. [Concomitant]
     Active Substance: CLONIDINE
     Indication: HYPERTENSION
     Dosage: 0.2 MG, 1X/DAY EVERY EVENING AT BEDTIME
  2. DIVALPROEX [Concomitant]
     Active Substance: DIVALPROEX SODIUM
     Dosage: 500 MG, 1X/DAY
     Dates: end: 20150817
  3. LYRICA [Suspect]
     Active Substance: PREGABALIN
     Dosage: 300 MG, 2X/DAY
     Dates: end: 20170224
  4. DOCUSATE SODIUM. [Concomitant]
     Active Substance: DOCUSATE SODIUM
     Indication: CONSTIPATION
     Dosage: 100 MG, DAILY (TAKE 1 STOOL SOFTENER GEL DAILY)
  5. MIRALAX [Concomitant]
     Active Substance: POLYETHYLENE GLYCOL 3350
     Dosage: UNK, DAILY (1 TEASPOON)
  6. TYLENOL [Concomitant]
     Active Substance: ACETAMINOPHEN
     Indication: PAIN
     Dosage: 500 MG, AS NEEDED EVERY 4-6 HRS
  7. METHYLPREDNISOLONE. [Concomitant]
     Active Substance: METHYLPREDNISOLONE
     Indication: GOUT
     Dosage: 4 MG, DAILY (AS NEEDED)
  8. MAGNESIUM OXIDE. [Concomitant]
     Active Substance: MAGNESIUM OXIDE
     Indication: BLOOD MAGNESIUM DECREASED
     Dosage: 800 MG, 2X/DAY
  9. ASPIRIN. [Concomitant]
     Active Substance: ASPIRIN
     Dosage: 81 MG, 1X/DAY AM
     Route: 048
  10. DIVALPROEX [Concomitant]
     Active Substance: DIVALPROEX SODIUM
     Indication: MIGRAINE
     Dosage: 500 MG, 2X/DAY
  11. MIRALAX [Concomitant]
     Active Substance: POLYETHYLENE GLYCOL 3350
     Indication: CONSTIPATION
     Dosage: UNK, 2X/DAY
  12. FUROSEMIDE. [Concomitant]
     Active Substance: FUROSEMIDE
     Indication: FLUID RETENTION
     Dosage: 40 MG, 1 TABLET 4 TIMES A WEEK
  13. SIMVASTATIN. [Concomitant]
     Active Substance: SIMVASTATIN
     Indication: BLOOD CHOLESTEROL INCREASED
     Dosage: 20 MG, 1X/DAY
  14. MAGNESIUM OXIDE. [Concomitant]
     Active Substance: MAGNESIUM OXIDE
     Dosage: 400 MG, 1X/DAY (2400MG ALL OTC)
  15. ALLOPURINOL. [Concomitant]
     Active Substance: ALLOPURINOL
     Indication: GOUT
     Dosage: 300 MG, 1X/DAY
  16. HYDROXYZINE PAMOATE. [Concomitant]
     Active Substance: HYDROXYZINE PAMOATE
     Indication: PRURITUS
  17. LOSARTAN. [Concomitant]
     Active Substance: LOSARTAN
     Indication: HYPERTENSION
     Dosage: 50 MG, 1X/DAY (INCREASED DOSE TO 100MG ONCE A DAY IN THE BEGINNING OF 2017)
  18. LYRICA [Suspect]
     Active Substance: PREGABALIN
     Indication: NEUROPATHY PERIPHERAL
     Dosage: 150 MG, 2X/DAY
     Route: 048
     Dates: start: 20150406
  19. LYRICA [Suspect]
     Active Substance: PREGABALIN
     Dosage: 300 MG, 2X/DAY
     Route: 048
     Dates: end: 20170224
  20. CLONIDINE. [Concomitant]
     Active Substance: CLONIDINE
     Dosage: 0.2 MG, 1X/DAY
  21. COLCRYS [Concomitant]
     Active Substance: COLCHICINE
     Indication: GOUT
     Dosage: 0.6 MG, AS NEEDED
  22. LOSARTAN/HCTZ [Concomitant]
     Active Substance: HYDROCHLOROTHIAZIDE\LOSARTAN
     Indication: HYPERTENSION
     Dosage: LOSARTAN 100MG]/[HCTZ 25MG], 1X/DAY AM
  23. SUMATRIPTAN SUCCINATE. [Concomitant]
     Active Substance: SUMATRIPTAN SUCCINATE
     Dosage: 100 MG, AS NEEDED (AT ONSET OF MIGRAINE, THEN 2 HOURS LATER)
  24. LYRICA [Suspect]
     Active Substance: PREGABALIN
     Indication: BURNING SENSATION
     Dosage: 150 MG, 2X/DAY 5 MG, 2X/DAY TWICE IN AM/PM)
     Route: 048
     Dates: start: 20141228
  25. ALLOPURINOL. [Concomitant]
     Active Substance: ALLOPURINOL
     Dosage: 400 MG, 1X/DAY
  26. METFORMIN [Concomitant]
     Active Substance: METFORMIN HYDROCHLORIDE
     Indication: DIABETES MELLITUS
     Dosage: 500 MG, 2X/DAY WITH MEALS
     Route: 048
     Dates: end: 20160304
  27. OMEPRAZOLE. [Concomitant]
     Active Substance: OMEPRAZOLE
     Indication: GASTROOESOPHAGEAL REFLUX DISEASE
     Dosage: 20 MG, 1X/DAY
     Route: 048
  28. SUMATRIPTAN SUCCINATE. [Concomitant]
     Active Substance: SUMATRIPTAN SUCCINATE
     Indication: MIGRAINE
     Dosage: 100 MG, AS NEEDED (AND REPEAT IN 2 HOURS IF NEEDED, NO MORE THE 2 TIMES PER DAY)
     Route: 048
  29. HYDROXYZINE PAMOATE. [Concomitant]
     Active Substance: HYDROXYZINE PAMOATE
     Indication: RASH
     Dosage: 50 MG, 4 TIMES DAILY AS NEEDED FOR 5 DAYS
     Route: 048
     Dates: start: 20140705
  30. VITAMIN D [Concomitant]
     Active Substance: VITAMIN D NOS
     Indication: BONE DISORDER
     Dosage: 1000 MG, DAILY
  31. POTASSIUM CHLORIDE. [Concomitant]
     Active Substance: POTASSIUM CHLORIDE
     Indication: BLOOD POTASSIUM DECREASED
     Dosage: 20 MEQ, DAILY
  32. VITAMIN D3 [Concomitant]
     Active Substance: CHOLECALCIFEROL
     Indication: VITAMIN SUPPLEMENTATION
     Dosage: 2000 IU, 1X/DAY
     Dates: end: 2016
  33. LYRICA [Suspect]
     Active Substance: PREGABALIN
     Indication: DIABETIC NEUROPATHY
     Dosage: 75 MG, 2X/DAY
     Route: 048
     Dates: start: 20141221, end: 20141227
  34. DOCUSATE SODIUM. [Concomitant]
     Active Substance: DOCUSATE SODIUM
     Dosage: 100 MG, 1X/DAY
  35. POTASSIUM CHLORIDE. [Concomitant]
     Active Substance: POTASSIUM CHLORIDE
     Dosage: 20 MEQ, ALTERNATE DAY

REACTIONS (5)
  - Cardiac failure congestive [Unknown]
  - Intentional product misuse [Unknown]
  - Oedema peripheral [Recovered/Resolved]
  - Product dispensing error [Unknown]
  - Drug ineffective [Not Recovered/Not Resolved]
